FAERS Safety Report 10242768 (Version 2)
Quarter: 2016Q1

REPORT INFORMATION
  Report Type: Spontaneous
  Country: JP (occurrence: JP)
  Receive Date: 20140617
  Receipt Date: 20160211
  Transmission Date: 20160525
  Serious: Yes (Other)
  Sender: FDA-Public Use
  Company Number: JP-BRISTOL-MYERS SQUIBB COMPANY-21046677

PATIENT
  Age: 40 Year
  Sex: Female

DRUGS (3)
  1. METGLUCO [Suspect]
     Active Substance: METFORMIN HYDROCHLORIDE
     Indication: INSULIN RESISTANCE
     Dosage: 500 MG, QD
     Route: 048
     Dates: start: 20120410, end: 20120722
  2. CLOMID [Concomitant]
     Active Substance: CLOMIPHENE CITRATE
     Indication: DYSURIA
     Dosage: 50 MG, QD
     Route: 048
     Dates: start: 20120501, end: 20120706
  3. NOVORAPID [Concomitant]
     Active Substance: INSULIN ASPART
     Indication: PRODUCT USED FOR UNKNOWN INDICATION
     Dosage: UNK
     Route: 058
     Dates: start: 20121003, end: 20130228

REACTIONS (5)
  - Normal newborn [Recovered/Resolved]
  - Gestational diabetes [Recovering/Resolving]
  - Maternal exposure during pregnancy [Recovered/Resolved]
  - Off label use [Unknown]
  - General symptom [Unknown]

NARRATIVE: CASE EVENT DATE: 20120827
